FAERS Safety Report 5532264-5 (Version None)
Quarter: 2007Q4

REPORT INFORMATION
  Report Type: 
  Country: None (occurrence: None)
  Receive Date: 20071203
  Receipt Date: 20071121
  Transmission Date: 20080405
  Serious: Yes (Hospitalization)
  Sender: FDA-Public Use
  Company Number: JP-SANOFI-SYNTHELABO-A01200711322

PATIENT
  Sex: Female

DRUGS (15)
  1. DEPAS [Concomitant]
     Indication: BACK PAIN
     Route: 048
     Dates: start: 20041124, end: 20070927
  2. DEPAS [Concomitant]
     Indication: ANXIETY
     Route: 048
     Dates: start: 20041124, end: 20070927
  3. MAGMITT [Concomitant]
     Indication: CONSTIPATION
     Route: 048
     Dates: start: 20070908, end: 20070927
  4. TORSEMIDE [Concomitant]
     Indication: HYPERTENSION
     Route: 048
     Dates: start: 20041124, end: 20070927
  5. NORVASC [Concomitant]
     Indication: HYPERTENSION
     Route: 048
     Dates: start: 20041124, end: 20070927
  6. CIBENOL [Interacting]
     Indication: SICK SINUS SYNDROME
     Route: 048
     Dates: start: 20041124, end: 20070927
  7. CIBENOL [Interacting]
     Indication: CARDIAC PACEMAKER INSERTION
     Route: 048
     Dates: start: 20041124, end: 20070927
  8. ASPIRIN [Concomitant]
     Indication: ANGINA PECTORIS
     Route: 048
     Dates: start: 20041124, end: 20070927
  9. EPADEL [Concomitant]
     Indication: HYPERLIPIDAEMIA
     Route: 048
     Dates: start: 20041124, end: 20070927
  10. MECALMIN [Concomitant]
     Indication: DIZZINESS
     Route: 048
     Dates: start: 20041124, end: 20070927
  11. MEDICON [Interacting]
     Indication: UPPER RESPIRATORY TRACT INFECTION
     Route: 048
     Dates: start: 20070925, end: 20070927
  12. LOXONIN [Concomitant]
     Indication: BACK PAIN
     Route: 048
     Dates: start: 20070212, end: 20070927
  13. ZYLORIC [Concomitant]
     Indication: HYPERURICAEMIA
     Route: 065
     Dates: start: 20070907, end: 20070927
  14. TAKEPRON [Interacting]
     Indication: REFLUX OESOPHAGITIS
     Route: 048
     Dates: start: 20070924, end: 20070927
  15. PLAVIX [Suspect]
     Indication: ANGINA PECTORIS
     Route: 048
     Dates: start: 20070924, end: 20070927

REACTIONS (3)
  - ATRIAL FIBRILLATION [None]
  - DRUG INTERACTION [None]
  - SUPRAVENTRICULAR TACHYCARDIA [None]
